FAERS Safety Report 9061580 (Version 1)
Quarter: 2012Q4

REPORT INFORMATION
  Report Type: Spontaneous
  Country: US (occurrence: None)
  Receive Date: 20120910
  Receipt Date: 20120910
  Transmission Date: 20130627
  Serious: Yes (Other)
  Sender: FDA-Public Use
  Company Number: USA/USA/12/0025621

PATIENT
  Age: 58 Year
  Sex: Female
  Weight: 83.01 kg

DRUGS (3)
  1. TERBINAFINE [Suspect]
     Indication: ONYCHOMYCOSIS
     Route: 048
     Dates: start: 20120630, end: 20120811
  2. OMEPRAZOLE [Concomitant]
  3. PROZAC (FLUOXETINE HYDROCHLORIDE) [Concomitant]

REACTIONS (7)
  - Dysgeusia [None]
  - Thermal burn [None]
  - Hyposmia [None]
  - Decreased appetite [None]
  - Weight decreased [None]
  - Ageusia [None]
  - Drug prescribing error [None]
